FAERS Safety Report 5840661-3 (Version None)
Quarter: 2008Q3

REPORT INFORMATION
  Report Type: 
  Country: None (occurrence: None)
  Receive Date: 20080811
  Receipt Date: 20080804
  Transmission Date: 20090109
  Serious: Yes (Hospitalization, Other)
  Sender: FDA-Public Use
  Company Number: PHHY2008GB15344

PATIENT
  Age: 32 Year
  Sex: Female

DRUGS (3)
  1. TEGRETOL [Suspect]
     Dosage: 250 MG QDS
     Route: 048
     Dates: start: 20060101
  2. TEGRETOL [Suspect]
     Dosage: 500 MG, BID
     Route: 054
  3. TEGRETOL [Suspect]
     Dosage: 15 ML QDS

REACTIONS (11)
  - APHASIA [None]
  - COLOSTOMY [None]
  - DYSPHAGIA [None]
  - DYSTONIA [None]
  - ENTERECTOMY [None]
  - ILEOSTOMY [None]
  - MALAISE [None]
  - PAIN [None]
  - POST PROCEDURAL BILE LEAK [None]
  - VOLVULUS OF SMALL BOWEL [None]
  - WHEELCHAIR USER [None]
